FAERS Safety Report 9305851 (Version 5)
Quarter: 2014Q1

REPORT INFORMATION
  Report Type: Spontaneous
  Country: US (occurrence: US)
  Receive Date: 20130523
  Receipt Date: 20140115
  Transmission Date: 20141002
  Serious: Yes (Other)
  Sender: FDA-Public Use
  Company Number: US-PFIZER INC-2013154165

PATIENT
  Age: 65 Year
  Sex: Female

DRUGS (3)
  1. BOSULIF [Suspect]
     Indication: CHRONIC MYELOID LEUKAEMIA
     Dosage: 400MG DAILY
     Route: 048
     Dates: start: 20130108
  2. BOSULIF [Suspect]
     Dosage: 500 MG, UNK
     Route: 048
     Dates: start: 201301
  3. BOSULIF [Suspect]
     Dosage: 500 MG, TAKE 5 TABLETS, BY MOUTH, DAILY FOR A TOTAL DAILY DOSE OF 500 MG
     Route: 048
     Dates: start: 201301

REACTIONS (7)
  - Ileus [Unknown]
  - Malaise [Recovered/Resolved]
  - Diarrhoea [Recovered/Resolved]
  - Gastric disorder [Recovered/Resolved]
  - Decreased appetite [Recovered/Resolved]
  - Scab [Recovered/Resolved]
  - Pain [Unknown]
